FAERS Safety Report 13183111 (Version 3)
Quarter: 2018Q4

REPORT INFORMATION
  Report Type: Spontaneous
  Country: CA (occurrence: CA)
  Receive Date: 20170203
  Receipt Date: 20181112
  Transmission Date: 20190204
  Serious: Yes (Other)
  Sender: FDA-Public Use
  Company Number: CA-ORION CORPORATION ORION PHARMA-TREX2016-2816

PATIENT
  Age: 58 Year
  Sex: Male
  Weight: 82 kg

DRUGS (8)
  1. METHOTREXATE (TRADE NAME UNKNOWN) [Suspect]
     Active Substance: METHOTREXATE
     Indication: PRODUCT USED FOR UNKNOWN INDICATION
     Route: 065
     Dates: start: 2000, end: 2002
  2. HYDROXYCHLOROQUINE SULFATE. [Suspect]
     Active Substance: HYDROXYCHLOROQUINE SULFATE
     Indication: PRODUCT USED FOR UNKNOWN INDICATION
     Route: 065
  3. ENBREL [Suspect]
     Active Substance: ETANERCEPT
     Indication: RHEUMATOID ARTHRITIS
     Route: 058
     Dates: start: 2002, end: 2014
  4. SULFASALAZINE. [Concomitant]
     Active Substance: SULFASALAZINE
     Indication: RHEUMATOID ARTHRITIS
     Route: 065
     Dates: start: 1990, end: 2002
  5. HUMIRA [Suspect]
     Active Substance: ADALIMUMAB
     Dosage: CYCLIC
     Route: 058
  6. HUMIRA [Suspect]
     Active Substance: ADALIMUMAB
     Indication: RHEUMATOID ARTHRITIS
     Dosage: CYCLIC
     Route: 058
     Dates: start: 201407, end: 201507
  7. APO-HYDROXYQUINE [Suspect]
     Active Substance: HYDROXYCHLOROQUINE SULFATE
     Indication: PRODUCT USED FOR UNKNOWN INDICATION
     Route: 065
  8. CELEBREX [Concomitant]
     Active Substance: CELECOXIB
     Route: 065

REACTIONS (2)
  - Drug intolerance [Unknown]
  - Hepatic enzyme abnormal [Unknown]

NARRATIVE: CASE EVENT DATE: 2002
